FAERS Safety Report 24663493 (Version 2)
Quarter: 2024Q4

REPORT INFORMATION
  Report Type: Report from Study
  Country: CA (occurrence: CA)
  Receive Date: 20241126
  Receipt Date: 20241211
  Transmission Date: 20250114
  Serious: Yes (Hospitalization)
  Sender: DR REDDYS
  Company Number: CA-DRL-USA-CLI/CAN/24/0017401

PATIENT
  Age: 60 Year
  Sex: Female

DRUGS (1)
  1. ZOLEDRONIC ACID [Suspect]
     Active Substance: ZOLEDRONIC ACID
     Indication: Osteoporosis
     Dosage: 5 MG/100ML Q YEARLY
     Route: 065
     Dates: start: 20230620

REACTIONS (4)
  - Hospitalisation [Unknown]
  - Urinary tract infection [Unknown]
  - Treatment noncompliance [Unknown]
  - Walking aid user [Unknown]
